FAERS Safety Report 9063445 (Version 1)
Quarter: 2013Q1

REPORT INFORMATION
  Report Type: Spontaneous
  Country: IE (occurrence: IE)
  Receive Date: 20130213
  Receipt Date: 20130213
  Transmission Date: 20140127
  Serious: Yes (Hospitalization, Other)
  Sender: FDA-Public Use
  Company Number: PHHY2013IE012880

PATIENT
  Age: 71 Year
  Sex: Male

DRUGS (4)
  1. WARFARIN [Suspect]
     Indication: ATRIAL FIBRILLATION
     Dosage: 3 MG, UNK
     Route: 048
  2. ATORVASTATIN [Concomitant]
     Dosage: 20 MG, QD
  3. LANOXIN [Concomitant]
     Dosage: 2 DF, UNK
  4. BISOPROLOL [Concomitant]
     Dosage: 2.5 MG, QD

REACTIONS (17)
  - Tachycardia [Recovered/Resolved]
  - Neck pain [Recovered/Resolved]
  - Tongue haematoma [Recovered/Resolved]
  - Haemorrhagic ascites [Recovered/Resolved]
  - Intestinal haematoma [Recovered/Resolved]
  - Oedema mouth [Recovered/Resolved]
  - Salivary hypersecretion [Recovered/Resolved]
  - Oropharyngeal pain [Recovered/Resolved]
  - Oral pain [Recovered/Resolved]
  - Melaena [Recovered/Resolved]
  - Abdominal pain [Recovered/Resolved]
  - Nausea [Recovered/Resolved]
  - Constipation [Recovered/Resolved]
  - Abdominal discomfort [Recovered/Resolved]
  - Abdominal tenderness [Recovered/Resolved]
  - Accidental exposure to product [Unknown]
  - Diarrhoea [Recovered/Resolved]
